FAERS Safety Report 8177302-9 (Version None)
Quarter: 2012Q1

REPORT INFORMATION
  Report Type: 
  Country: None (occurrence: None)
  Receive Date: 20120301
  Receipt Date: 20120224
  Transmission Date: 20120608
  Serious: No
  Sender: FDA-Public Use
  Company Number: US-PFIZER INC-2012051188

PATIENT
  Sex: Female

DRUGS (1)
  1. LYRICA [Suspect]
     Dosage: UNK
     Dates: end: 20111101

REACTIONS (5)
  - NAUSEA [None]
  - PRURITUS [None]
  - PAIN [None]
  - WITHDRAWAL SYNDROME [None]
  - DIARRHOEA [None]
